FAERS Safety Report 12568631 (Version 1)
Quarter: 2016Q3

REPORT INFORMATION
  Report Type: Spontaneous
  Country: US (occurrence: None)
  Receive Date: 20160718
  Receipt Date: 20160718
  Transmission Date: 20161109
  Serious: Yes (Death)
  Sender: FDA-Public Use
  Company Number: None

PATIENT
  Age: 83 Year
  Sex: Female

DRUGS (1)
  1. PROCRIT [Suspect]
     Active Substance: ERYTHROPOIETIN
     Indication: ARTHRITIS
     Dosage: 40,000 UNITS QOW SUBQ
     Route: 058
     Dates: start: 20150824, end: 20160610

REACTIONS (1)
  - Death [None]

NARRATIVE: CASE EVENT DATE: 20160610
